FAERS Safety Report 5323814-2 (Version None)
Quarter: 2007Q2

REPORT INFORMATION
  Report Type: 
  Country: None (occurrence: None)
  Receive Date: 20070514
  Receipt Date: 20070502
  Transmission Date: 20071010
  Serious: Yes (Life-Threatening, Hospitalization, Other)
  Sender: FDA-Public Use
  Company Number: B0466760A

PATIENT
  Age: 74 Year
  Sex: Female
  Weight: 67.6 kg

DRUGS (6)
  1. ARIXTRA [Suspect]
     Dosage: 2.5MG PER DAY
     Route: 058
     Dates: start: 20070312, end: 20070315
  2. LEVOTHYROXINE SODIUM [Concomitant]
     Dosage: 125MCG PER DAY
     Route: 048
  3. EFFEXOR [Concomitant]
     Dosage: 37.5MG TWICE PER DAY
     Route: 048
  4. FLECAINIDE ACETATE [Concomitant]
     Dosage: 1TAB IN THE MORNING
     Route: 048
  5. STILNOX [Concomitant]
     Dosage: 50MG AT NIGHT
     Route: 048
  6. BROMAZEPAM [Concomitant]
     Dosage: .5MG AT NIGHT
     Route: 048

REACTIONS (10)
  - ABDOMINAL PAIN [None]
  - DYSPHAGIA [None]
  - GASTRIC ULCER [None]
  - HYPOVOLAEMIC SHOCK [None]
  - MELAENA [None]
  - MUSCLE HAEMORRHAGE [None]
  - PNEUMONIA ASPIRATION [None]
  - RENAL TUBULAR NECROSIS [None]
  - SHOCK HAEMORRHAGIC [None]
  - VOCAL CORD PARALYSIS [None]
